FAERS Safety Report 6295415-3 (Version None)
Quarter: 2009Q3

REPORT INFORMATION
  Report Type: 
  Country: None (occurrence: None)
  Receive Date: 20090803
  Receipt Date: 20090730
  Transmission Date: 20100115
  Serious: Yes (Death, Hospitalization, Other)
  Sender: FDA-Public Use
  Company Number: PHHY2009BR31826

PATIENT
  Sex: Female

DRUGS (3)
  1. DIOVAN HCT [Suspect]
     Indication: HYPERTENSION
     Dosage: A HALF TABLET (320/25 MG) DAILY
     Route: 048
     Dates: start: 20090101, end: 20090301
  2. DAFLON (DIOSMIN) [Concomitant]
     Indication: CARDIOVASCULAR DISORDER
  3. VENOCUR [Concomitant]
     Indication: CARDIOVASCULAR DISORDER

REACTIONS (7)
  - HAEMORRHOID OPERATION [None]
  - HAEMORRHOIDS [None]
  - MULTI-ORGAN FAILURE [None]
  - POSTOPERATIVE WOUND COMPLICATION [None]
  - PULMONARY EMBOLISM [None]
  - SEPSIS [None]
  - URINARY TRACT INFECTION [None]
